FAERS Safety Report 5713123-1 (Version None)
Quarter: 2008Q2

REPORT INFORMATION
  Report Type: 
  Country: None (occurrence: None)
  Receive Date: 20080422
  Receipt Date: 20070525
  Transmission Date: 20081010
  Serious: No
  Sender: FDA-Public Use
  Company Number: US-BRISTOL-MYERS SQUIBB COMPANY-13793245

PATIENT
  Sex: Female

DRUGS (4)
  1. HYDREA [Suspect]
  2. WARFARIN SODIUM [Concomitant]
     Route: 048
  3. ULTRAM [Concomitant]
  4. RELAFEN [Concomitant]

REACTIONS (1)
  - INFLUENZA LIKE ILLNESS [None]
